FAERS Safety Report 17797611 (Version 1)
Quarter: 2020Q2

REPORT INFORMATION
  Report Type: Spontaneous
  Country: US (occurrence: US)
  Receive Date: 20200515
  Receipt Date: 20200515
  Transmission Date: 20200714
  Serious: Yes (Disabling)
  Sender: FDA-Public Use
  Company Number: None

PATIENT
  Sex: Female

DRUGS (1)
  1. LORAZEPAM. [Suspect]
     Active Substance: LORAZEPAM

REACTIONS (10)
  - Insomnia [None]
  - Fear [None]
  - Burning sensation [None]
  - Aphasia [None]
  - Paraesthesia [None]
  - Disturbance in attention [None]
  - Muscular weakness [None]
  - Suicidal ideation [None]
  - Withdrawal syndrome [None]
  - Anxiety [None]

NARRATIVE: CASE EVENT DATE: 20181108
